FAERS Safety Report 12709795 (Version 1)
Quarter: 2016Q3

REPORT INFORMATION
  Report Type: Spontaneous
  Country: US (occurrence: US)
  Receive Date: 20160902
  Receipt Date: 20160902
  Transmission Date: 20161109
  Serious: No
  Sender: FDA-Public Use
  Company Number: US-BRISTOL-MYERS SQUIBB COMPANY-BMS-2016-072142

PATIENT
  Sex: Female

DRUGS (1)
  1. SPRYCEL [Suspect]
     Active Substance: DASATINIB
     Indication: THROMBOCYTOSIS
     Dosage: 100 MG, UNK
     Route: 065
     Dates: start: 20160426

REACTIONS (4)
  - Product use issue [Unknown]
  - Nasal congestion [Unknown]
  - Neuropathy peripheral [Unknown]
  - Alopecia [Unknown]
